FAERS Safety Report 7995445-7 (Version None)
Quarter: 2011Q4

REPORT INFORMATION
  Report Type: 
  Country: None (occurrence: None)
  Receive Date: 20111220
  Receipt Date: 20111216
  Transmission Date: 20120403
  Serious: No
  Sender: FDA-Public Use
  Company Number: US-BAYER-2011-121700

PATIENT
  Age: 60 Year
  Sex: Female
  Weight: 77 kg

DRUGS (2)
  1. CALCIUM W/VITAMIN D NOS [Concomitant]
  2. ASPIRIN [Suspect]
     Indication: ANALGESIC THERAPY
     Dosage: 1 DF, PRN
     Dates: start: 20111201, end: 20111201

REACTIONS (1)
  - DYSPEPSIA [None]
